FAERS Safety Report 4869273-5 (Version None)
Quarter: 2005Q4

REPORT INFORMATION
  Report Type: 
  Country: None (occurrence: None)
  Receive Date: 20051230
  Receipt Date: 20051222
  Transmission Date: 20060501
  Serious: Yes (Hospitalization, Other)
  Sender: FDA-Public Use
  Company Number: US-JNJFOC-20051205689

PATIENT
  Sex: Female
  Weight: 77.11 kg

DRUGS (4)
  1. DURAGESIC-100 [Suspect]
     Route: 062
  2. NEXIUM [Concomitant]
     Route: 048
  3. SINGULAIR [Concomitant]
     Indication: SINUSITIS
     Route: 048
  4. ZOCOR [Concomitant]
     Route: 048

REACTIONS (3)
  - BALANCE DISORDER [None]
  - FALL [None]
  - ROTATOR CUFF SYNDROME [None]
